FAERS Safety Report 8484183-2 (Version None)
Quarter: 2012Q3

REPORT INFORMATION
  Report Type: 
  Country: None (occurrence: None)
  Receive Date: 20120703
  Receipt Date: 20120629
  Transmission Date: 20120928
  Serious: Yes (Other)
  Sender: FDA-Public Use
  Company Number: US-BAYER-2012-065066

PATIENT
  Age: 43 Year
  Sex: Female
  Weight: 52 kg

DRUGS (2)
  1. BETASERON [Suspect]
     Indication: PRODUCT USED FOR UNKNOWN INDICATION
     Dosage: 0.3 MG, QOD
     Route: 058
  2. MICROGESTIN 1.5/30 [Concomitant]
     Indication: PRODUCT USED FOR UNKNOWN INDICATION
     Dosage: 1.5/30, UNK
     Route: 048

REACTIONS (5)
  - POLLAKIURIA [None]
  - URINARY TRACT INFECTION [None]
  - SENSATION OF PRESSURE [None]
  - URINARY TRACT PAIN [None]
  - MICTURITION URGENCY [None]
